FAERS Safety Report 24444552 (Version 2)
Quarter: 2024Q4

REPORT INFORMATION
  Report Type: Spontaneous
  Country: CH (occurrence: CH)
  Receive Date: 20241016
  Receipt Date: 20241017
  Transmission Date: 20250115
  Serious: No
  Sender: ROCHE
  Company Number: CH-ROCHE-2797393

PATIENT
  Sex: Female

DRUGS (2)
  1. MABTHERA [Suspect]
     Active Substance: RITUXIMAB
     Indication: B-cell lymphoma
     Route: 065
  2. MABTHERA [Suspect]
     Active Substance: RITUXIMAB
     Indication: Chronic lymphocytic leukaemia

REACTIONS (2)
  - Off label use [Unknown]
  - Hypersensitivity [Unknown]
